FAERS Safety Report 4454315-1 (Version None)
Quarter: 2004Q3

REPORT INFORMATION
  Report Type: 
  Country: None (occurrence: None)
  Receive Date: 20040916
  Receipt Date: 20040916
  Transmission Date: 20050211
  Serious: Yes (Hospitalization)
  Sender: FDA-Public Use
  Company Number: None

PATIENT
  Age: 64 Year
  Sex: Male
  Weight: 95.5 kg

DRUGS (9)
  1. PENICILLIN [Suspect]
  2. AMINO DERIVATIVES [Suspect]
  3. GLIPIZIDE [Concomitant]
  4. IRBESARTAN [Concomitant]
  5. ISOSORBIDE MONONITRATE [Concomitant]
  6. CLINDAMYCIN HCL [Concomitant]
  7. AMOXICILLIN [Concomitant]
  8. HYDROCODONE / ACETAMINOPHEN [Concomitant]
  9. SIMVASTATIN [Concomitant]

REACTIONS (2)
  - SWELLING FACE [None]
  - URTICARIA [None]
